FAERS Safety Report 11984295 (Version 1)
Quarter: 2016Q1

REPORT INFORMATION
  Report Type: Spontaneous
  Country: US (occurrence: US)
  Receive Date: 20160201
  Receipt Date: 20160201
  Transmission Date: 20160526
  Serious: No
  Sender: FDA-Public Use
  Company Number: US-KADMON PHARMACEUTICALS, LLC-KAD201502-000353

PATIENT
  Age: 57 Year
  Sex: Female

DRUGS (1)
  1. RIBASPHERE RIBAPAK [Suspect]
     Active Substance: RIBAVIRIN
     Indication: HEPATITIS C
     Dosage: TABLET
     Dates: start: 20150121

REACTIONS (2)
  - Headache [Unknown]
  - Oral mucosal blistering [Unknown]

NARRATIVE: CASE EVENT DATE: 20150204
